FAERS Safety Report 17881385 (Version 3)
Quarter: 2020Q3

REPORT INFORMATION
  Report Type: Report from Study
  Country: US (occurrence: US)
  Receive Date: 20200610
  Receipt Date: 20200819
  Transmission Date: 20201103
  Serious: Yes (Hospitalization, Other)
  Sender: FDA-Public Use
  Company Number: US-ACTELION-A-NJ2019-190997

PATIENT
  Age: 63 Year
  Sex: Female
  Weight: 69.39 kg

DRUGS (6)
  1. VELETRI [Suspect]
     Active Substance: EPOPROSTENOL
     Dosage: 22 NG/KG, PER MIN
     Route: 042
  2. VELETRI [Suspect]
     Active Substance: EPOPROSTENOL
     Indication: PULMONARY ARTERIAL HYPERTENSION
     Dosage: 70 NG/KG, PER MIN
     Route: 042
  3. VELETRI [Suspect]
     Active Substance: EPOPROSTENOL
     Dosage: 2 NG/KG, PER MIN
     Route: 042
  4. VELETRI [Suspect]
     Active Substance: EPOPROSTENOL
     Dosage: 60 NG/KG, PER MIN
     Route: 042
  5. VELETRI [Suspect]
     Active Substance: EPOPROSTENOL
     Dosage: 32 NG/KG, PER MIN
     Route: 042
  6. SILDENAFIL CITRATE. [Concomitant]
     Active Substance: SILDENAFIL CITRATE

REACTIONS (23)
  - Toothache [Not Recovered/Not Resolved]
  - Headache [Unknown]
  - Diarrhoea [Unknown]
  - Abdominal pain [Unknown]
  - Flushing [Not Recovered/Not Resolved]
  - Joint arthroplasty [Unknown]
  - Catheter site pruritus [Unknown]
  - Pain in extremity [Not Recovered/Not Resolved]
  - Hypotension [Not Recovered/Not Resolved]
  - Device alarm issue [Unknown]
  - Incorrect drug administration rate [Recovered/Resolved]
  - Feeling cold [Unknown]
  - Joint manipulation [Unknown]
  - Device occlusion [Unknown]
  - Knee arthroplasty [Unknown]
  - Limb discomfort [Unknown]
  - Joint injury [Not Recovered/Not Resolved]
  - Pain in jaw [Unknown]
  - Weight decreased [Unknown]
  - Sleep disorder [Unknown]
  - Dermatitis contact [Recovering/Resolving]
  - Application site erythema [Unknown]
  - Decreased appetite [Not Recovered/Not Resolved]

NARRATIVE: CASE EVENT DATE: 20200804
